FAERS Safety Report 4304400-X (Version None)
Quarter: 2004Q1

REPORT INFORMATION
  Report Type: 
  Country: None (occurrence: None)
  Receive Date: 20040224
  Receipt Date: 20040212
  Transmission Date: 20041129
  Serious: Yes (Death)
  Sender: FDA-Public Use
  Company Number: 163-20785-03110489

PATIENT
  Age: 9 Year
  Sex: Male

DRUGS (2)
  1. THALOMID [Suspect]
     Indication: MEDULLOBLASTOMA
     Dosage: 400 MG, DAILY, ORAL
     Route: 048
     Dates: start: 20030411, end: 20031105
  2. CELEBREX [Suspect]
     Indication: MEDULLOBLASTOMA

REACTIONS (1)
  - INTRACRANIAL TUMOUR HAEMORRHAGE [None]
